FAERS Safety Report 25179392 (Version 1)
Quarter: 2025Q2

REPORT INFORMATION
  Report Type: Spontaneous
  Country: RO (occurrence: RO)
  Receive Date: 20250409
  Receipt Date: 20250409
  Transmission Date: 20250717
  Serious: Yes (Hospitalization, Other)
  Sender: PFIZER
  Company Number: RO-shionogi-202500003405

PATIENT
  Age: 39 Year
  Sex: Female

DRUGS (6)
  1. TIGECYCLINE [Suspect]
     Active Substance: TIGECYCLINE
     Indication: Lung abscess
  2. CEFIDEROCOL SULFATE TOSYLATE [Suspect]
     Active Substance: CEFIDEROCOL SULFATE TOSYLATE
     Indication: Lung abscess
  3. COLISTIN [Suspect]
     Active Substance: COLISTIN
     Indication: Lung abscess
  4. METRONIDAZOLE [Suspect]
     Active Substance: METRONIDAZOLE
     Indication: Lung abscess
  5. CASPOFUNGIN [Suspect]
     Active Substance: CASPOFUNGIN
     Indication: Lung abscess
  6. VANCOMYCIN [Suspect]
     Active Substance: VANCOMYCIN
     Indication: Lung abscess

REACTIONS (2)
  - Encephalitis [Recovering/Resolving]
  - Myoclonus [Recovering/Resolving]
